FAERS Safety Report 5464950-X (Version None)
Quarter: 2007Q3

REPORT INFORMATION
  Report Type: 
  Country: None (occurrence: None)
  Receive Date: 20070921
  Receipt Date: 20070911
  Transmission Date: 20080115
  Serious: Yes (Other)
  Sender: FDA-Public Use
  Company Number: FR-PFIZER INC-2007076995

PATIENT
  Age: 50 Year
  Sex: Male

DRUGS (4)
  1. CHAMPIX [Suspect]
  2. METFORMIN [Concomitant]
  3. ACARBOSE [Concomitant]
  4. GLIMEPIRIDE [Concomitant]

REACTIONS (1)
  - DIABETES MELLITUS INADEQUATE CONTROL [None]
